FAERS Safety Report 8514309 (Version 2)
Quarter: 2012Q4

REPORT INFORMATION
  Report Type: 
  Country: US (occurrence: US)
  Receive Date: 20120416
  Receipt Date: 20121012
  Transmission Date: 20130627
  Serious: Yes (Death)
  Sender: FDA-Public Use
  Company Number: PHEH2012US007722

PATIENT
  Age: 51 Year
  Sex: Female

DRUGS (1)
  1. ZOMETA [Suspect]
     Indication: OSTEOPOROSIS
     Dosage: UNK UKN, UNK
     Route: 042
     Dates: start: 201105, end: 20111101

REACTIONS (2)
  - Death [Fatal]
  - Platelet count decreased [Unknown]
